FAERS Safety Report 23199378 (Version 2)
Quarter: 2024Q1

REPORT INFORMATION
  Report Type: Spontaneous
  Country: US (occurrence: US)
  Receive Date: 20231117
  Receipt Date: 20240219
  Transmission Date: 20240410
  Serious: No
  Sender: FDA-Public Use
  Company Number: US-Stemline Therapeutics, Inc.-2023ST004055

PATIENT
  Age: 74 Year
  Sex: Female

DRUGS (2)
  1. ORSERDU [Suspect]
     Active Substance: ELACESTRANT
     Indication: Product used for unknown indication
     Dosage: 345 MG TABLET ONCE DAILY
     Route: 048
     Dates: start: 20230907, end: 202311
  2. ORSERDU [Suspect]
     Active Substance: ELACESTRANT
     Dosage: 345 MG TABLET ONCE DAILY
     Route: 048
     Dates: start: 20230907, end: 202311

REACTIONS (2)
  - Nausea [Unknown]
  - Drug ineffective [Unknown]
